FAERS Safety Report 25012996 (Version 1)
Quarter: 2025Q1

REPORT INFORMATION
  Report Type: Report from Study
  Country: FR (occurrence: FR)
  Receive Date: 20250226
  Receipt Date: 20250226
  Transmission Date: 20250409
  Serious: Yes (Other)
  Sender: MYLAN
  Company Number: FR-MYLANLABS-2025M1016153

PATIENT
  Age: 69 Year
  Sex: Female

DRUGS (12)
  1. GABAPENTIN [Suspect]
     Active Substance: GABAPENTIN
     Indication: Movement disorder
  2. GABAPENTIN [Suspect]
     Active Substance: GABAPENTIN
     Indication: Gene mutation
     Route: 065
  3. GABAPENTIN [Suspect]
     Active Substance: GABAPENTIN
     Route: 065
  4. GABAPENTIN [Suspect]
     Active Substance: GABAPENTIN
  5. PRIMIDONE [Suspect]
     Active Substance: PRIMIDONE
     Indication: Movement disorder
  6. PRIMIDONE [Suspect]
     Active Substance: PRIMIDONE
     Indication: Gene mutation
     Route: 065
  7. PRIMIDONE [Suspect]
     Active Substance: PRIMIDONE
     Route: 065
  8. PRIMIDONE [Suspect]
     Active Substance: PRIMIDONE
  9. TRIHEXYPHENIDYL [Suspect]
     Active Substance: TRIHEXYPHENIDYL
     Indication: Movement disorder
  10. TRIHEXYPHENIDYL [Suspect]
     Active Substance: TRIHEXYPHENIDYL
     Indication: Gene mutation
     Route: 065
  11. TRIHEXYPHENIDYL [Suspect]
     Active Substance: TRIHEXYPHENIDYL
     Route: 065
  12. TRIHEXYPHENIDYL [Suspect]
     Active Substance: TRIHEXYPHENIDYL

REACTIONS (2)
  - Drug ineffective for unapproved indication [Unknown]
  - Off label use [Unknown]
